FAERS Safety Report 8234401-0 (Version None)
Quarter: 2012Q1

REPORT INFORMATION
  Report Type: 
  Country: None (occurrence: None)
  Receive Date: 20120326
  Receipt Date: 20120316
  Transmission Date: 20120608
  Serious: Yes (Death, Other)
  Sender: FDA-Public Use
  Company Number: TW-JNJFOC-20120310055

PATIENT
  Age: 5 Year
  Sex: Female

DRUGS (8)
  1. FENTANYL [Suspect]
     Dosage: 3 PATCHES
     Route: 062
     Dates: start: 20090513
  2. MORPHINE [Suspect]
     Indication: NEURALGIA
     Route: 042
  3. DEMEROL [Suspect]
     Indication: PRODUCT USED FOR UNKNOWN INDICATION
     Route: 065
  4. FENTANYL [Suspect]
     Indication: NEURALGIA
     Dosage: 1 PATCH
     Route: 062
     Dates: start: 20090513
  5. METHYLPREDNISOLONE [Suspect]
     Indication: NEURALGIA
     Route: 042
     Dates: start: 20090617
  6. MIDAZOLAM [Suspect]
     Indication: PRODUCT USED FOR UNKNOWN INDICATION
     Route: 065
  7. LIDOCAINE [Suspect]
     Indication: PRODUCT USED FOR UNKNOWN INDICATION
     Route: 065
  8. IFOSFAMIDE [Suspect]
     Indication: CHEMOTHERAPY
     Route: 065
     Dates: end: 20090705

REACTIONS (2)
  - CARDIOPULMONARY FAILURE [None]
  - INAPPROPRIATE ANTIDIURETIC HORMONE SECRETION [None]
